FAERS Safety Report 14503946 (Version 1)
Quarter: 2018Q1

REPORT INFORMATION
  Report Type: Spontaneous
  Country: US (occurrence: US)
  Receive Date: 20180208
  Receipt Date: 20180208
  Transmission Date: 20180509
  Serious: No
  Sender: FDA-Public Use
  Company Number: US-JNJFOC-20180104004

PATIENT
  Age: 63 Year
  Sex: Female

DRUGS (7)
  1. HYDROCODONE BITARTRATE W/PARACETAMOL [Concomitant]
     Active Substance: ACETAMINOPHEN\HYDROCODONE BITARTRATE
     Dosage: 10-325MG
  2. IMBRUVICA [Suspect]
     Active Substance: IBRUTINIB
     Indication: WALDENSTROM^S MACROGLOBULINAEMIA
     Dosage: 420 MG, QD
     Route: 048
     Dates: start: 20160319
  3. ALBUTEROL. [Concomitant]
     Active Substance: ALBUTEROL
  4. IMBRUVICA [Suspect]
     Active Substance: IBRUTINIB
     Indication: WALDENSTROM^S MACROGLOBULINAEMIA
     Dosage: 420 MG, QD
     Route: 048
  5. OXYBUTYNIN. [Concomitant]
     Active Substance: OXYBUTYNIN CHLORIDE
  6. MOBIC [Concomitant]
     Active Substance: MELOXICAM
  7. WELLBUTRIN [Concomitant]
     Active Substance: BUPROPION HYDROCHLORIDE
     Dosage: 150 MG, UNK

REACTIONS (7)
  - Headache [Unknown]
  - Fatigue [Unknown]
  - Eye pain [Unknown]
  - Mouth haemorrhage [Unknown]
  - Bruxism [Unknown]
  - Gingival bleeding [Unknown]
  - Glossodynia [Unknown]

NARRATIVE: CASE EVENT DATE: 20171228
